FAERS Safety Report 9492329 (Version 1)
Quarter: 2013Q3

REPORT INFORMATION
  Report Type: Spontaneous
  Country: GB (occurrence: GB)
  Receive Date: 20130830
  Receipt Date: 20130830
  Transmission Date: 20140515
  Serious: Yes (Life-Threatening, Hospitalization, Other)
  Sender: FDA-Public Use
  Company Number: PHHY2013GB093415

PATIENT
  Age: 61 Year
  Sex: Female

DRUGS (2)
  1. PENICILLIN V POTASSIUM [Suspect]
     Indication: OROPHARYNGEAL PAIN
     Dosage: 500 MG, QID
     Route: 048
     Dates: start: 20121203
  2. WARFARIN [Concomitant]

REACTIONS (1)
  - Rectal haemorrhage [Recovered/Resolved]
